FAERS Safety Report 7359059-4 (Version None)
Quarter: 2011Q1

REPORT INFORMATION
  Report Type: 
  Country: None (occurrence: None)
  Receive Date: 20110310
  Receipt Date: 20110224
  Transmission Date: 20110831
  Serious: Yes (Hospitalization)
  Sender: FDA-Public Use
  Company Number: DSMITH

PATIENT
  Age: 54 Year
  Sex: Female

DRUGS (1)
  1. SOLNS. AGELESS RESULTS AMPM DAY CRM. SPF15 NIGHT CRM [Suspect]

REACTIONS (3)
  - OCULAR HYPERAEMIA [None]
  - BURNING SENSATION [None]
  - HEADACHE [None]
